FAERS Safety Report 12191853 (Version 1)
Quarter: 2016Q1

REPORT INFORMATION
  Report Type: Spontaneous
  Country: US (occurrence: US)
  Receive Date: 20160318
  Receipt Date: 20160318
  Transmission Date: 20160526
  Serious: No
  Sender: FDA-Public Use
  Company Number: US-PFIZER INC-2016160173

PATIENT
  Age: 34 Year
  Sex: Male
  Weight: 90.72 kg

DRUGS (1)
  1. CELECOXIB. [Suspect]
     Active Substance: CELECOXIB
     Indication: PAIN
     Dosage: ONE 200MG PILL DAILY
     Route: 048
     Dates: start: 20151209

REACTIONS (3)
  - Drug screen false positive [Unknown]
  - Intentional underdose [Not Recovered/Not Resolved]
  - Road traffic accident [Unknown]

NARRATIVE: CASE EVENT DATE: 20151209
